FAERS Safety Report 15483802 (Version 1)
Quarter: 2018Q4

REPORT INFORMATION
  Report Type: Spontaneous
  Country: IT (occurrence: IT)
  Receive Date: 20181010
  Receipt Date: 20181010
  Transmission Date: 20190205
  Serious: Yes (Hospitalization)
  Sender: FDA-Public Use
  Company Number: IT-SA-2018SA275166

PATIENT
  Age: 23 Year
  Sex: Female

DRUGS (1)
  1. LEMTRADA [Suspect]
     Active Substance: ALEMTUZUMAB
     Indication: RELAPSING-REMITTING MULTIPLE SCLEROSIS
     Dosage: 60 MG, TOTAL
     Route: 041
     Dates: start: 20180912, end: 20180918

REACTIONS (6)
  - Chest pain [Unknown]
  - Oxygen saturation decreased [Unknown]
  - Cough [Unknown]
  - Pulmonary mass [Unknown]
  - Haemoptysis [Unknown]
  - Sinus tachycardia [Unknown]

NARRATIVE: CASE EVENT DATE: 20180919
